FAERS Safety Report 22034063 (Version 1)
Quarter: 2023Q1

REPORT INFORMATION
  Report Type: Spontaneous
  Country: US (occurrence: None)
  Receive Date: 20230222
  Receipt Date: 20230222
  Transmission Date: 20230417
  Serious: No
  Sender: FDA-Public Use
  Company Number: None

PATIENT
  Age: 78 Year
  Sex: Female

DRUGS (13)
  1. REPATHA [Suspect]
     Active Substance: EVOLOCUMAB
     Indication: Hyperlipidaemia
     Dosage: OTHER FREQUENCY : EVERY 2 WEEKS;?
     Route: 058
     Dates: start: 20221101
  2. ASPIRIN [Concomitant]
     Active Substance: ASPIRIN
  3. CHLORTHALIDONE [Concomitant]
     Active Substance: CHLORTHALIDONE
  4. glucosamine 500mg [Concomitant]
  5. LOSARTAN [Concomitant]
     Active Substance: LOSARTAN
  6. magnesium 200mg [Concomitant]
  7. METFORMIN HYDROCHLORIDE [Concomitant]
     Active Substance: METFORMIN HYDROCHLORIDE
  8. METOPROLOL TARTRATE [Concomitant]
     Active Substance: METOPROLOL TARTRATE
  9. PRIMIDONE [Concomitant]
     Active Substance: PRIMIDONE
  10. SPIRONOLACTONE [Concomitant]
     Active Substance: SPIRONOLACTONE
  11. TYLENOL [Concomitant]
     Active Substance: ACETAMINOPHEN
  12. VALACYCLOVIR [Concomitant]
     Active Substance: VALACYCLOVIR HYDROCHLORIDE
  13. vitamin D 1000 unit [Concomitant]

REACTIONS (4)
  - Skin exfoliation [None]
  - Skin haemorrhage [None]
  - Dry skin [None]
  - Hypersensitivity [None]

NARRATIVE: CASE EVENT DATE: 20230215
